FAERS Safety Report 6845052-4 (Version None)
Quarter: 2010Q3

REPORT INFORMATION
  Report Type: 
  Country: None (occurrence: None)
  Receive Date: 20100715
  Receipt Date: 20070815
  Transmission Date: 20110219
  Serious: No
  Sender: FDA-Public Use
  Company Number: US-PFIZER INC-2007068382

PATIENT
  Sex: Male
  Weight: 86.2 kg

DRUGS (9)
  1. CHANTIX [Suspect]
     Indication: SMOKING CESSATION THERAPY
     Dates: start: 20070701
  2. METOPROLOL [Concomitant]
  3. METHOCARBAMOL [Concomitant]
  4. LISINOPRIL [Concomitant]
  5. OMEPRAZOLE [Concomitant]
  6. BUPROPION [Concomitant]
     Indication: DEPRESSION
  7. HYDROCODONE [Concomitant]
     Indication: PAIN IN EXTREMITY
  8. HYDROCODONE [Concomitant]
     Indication: BACK PAIN
  9. NITROGLYCERIN [Concomitant]

REACTIONS (2)
  - IRRITABILITY [None]
  - PERSONALITY CHANGE [None]
